FAERS Safety Report 16665000 (Version 2)
Quarter: 2019Q3

REPORT INFORMATION
  Report Type: Spontaneous
  Country: US (occurrence: US)
  Receive Date: 20190803
  Receipt Date: 20190808
  Transmission Date: 20191004
  Serious: Yes (Hospitalization, Other)
  Sender: FDA-Public Use
  Company Number: US-DRREDDYS-USA/USA/19/0112798

PATIENT
  Age: 46 Year
  Sex: Male

DRUGS (14)
  1. PROPOFOL INJECTABLE EMULSION [Suspect]
     Active Substance: PROPOFOL
  2. SALINE [Concomitant]
     Active Substance: SODIUM CHLORIDE
     Indication: INTRACRANIAL PRESSURE INCREASED
     Dosage: BOLUS
     Route: 065
  3. PROPOFOL INJECTABLE EMULSION [Suspect]
     Active Substance: PROPOFOL
     Dosage: INFUSION WAS INCREASED TO 45-60 MCG/KG/MIN
     Route: 065
  4. PROPRANOLOL HYDROCHLORIDE. [Concomitant]
     Active Substance: PROPRANOLOL HYDROCHLORIDE
     Indication: PAROXYSMAL SYMPATHETIC HYPERACTIVITY
     Route: 065
  5. SODIUM ACETATE. [Concomitant]
     Active Substance: SODIUM ACETATE
     Dosage: DAY 3, 3 SODIUM ACETATE INFUSION WAS CONTINUED
  6. GABAPENTIN. [Concomitant]
     Active Substance: GABAPENTIN
     Indication: PAROXYSMAL SYMPATHETIC HYPERACTIVITY
  7. PROPOFOL INJECTABLE EMULSION [Suspect]
     Active Substance: PROPOFOL
     Dosage: LOW DOSE OF FIXED-RATE PROPOFOL
  8. HEPARIN SODIUM. [Concomitant]
     Active Substance: HEPARIN SODIUM
     Indication: SUPERIOR SAGITTAL SINUS THROMBOSIS
     Dosage: DRIP
  9. FENTANYL. [Concomitant]
     Active Substance: FENTANYL
     Route: 065
  10. SODIUM ACETATE. [Concomitant]
     Active Substance: SODIUM ACETATE
     Indication: PROPHYLAXIS
  11. SODIUM ACETATE. [Concomitant]
     Active Substance: SODIUM ACETATE
     Dosage: DAY 4, RATE WAS INCREASED
  12. PROPOFOL INJECTABLE EMULSION [Suspect]
     Active Substance: PROPOFOL
     Indication: SEDATION
     Route: 065
  13. CLONIDINE. [Concomitant]
     Active Substance: CLONIDINE
     Indication: PAROXYSMAL SYMPATHETIC HYPERACTIVITY
     Route: 065
  14. FENTANYL. [Concomitant]
     Active Substance: FENTANYL
     Indication: PAROXYSMAL SYMPATHETIC HYPERACTIVITY
     Route: 065

REACTIONS (1)
  - Propofol infusion syndrome [Unknown]
